FAERS Safety Report 23885701 (Version 2)
Quarter: 2024Q4

REPORT INFORMATION
  Report Type: Spontaneous
  Country: CA (occurrence: CA)
  Receive Date: 20240522
  Receipt Date: 20241011
  Transmission Date: 20250114
  Serious: Yes (Other)
  Sender: SANDOZ
  Company Number: CA-SANDOZ-SDZ2024CA048374

PATIENT
  Sex: Male

DRUGS (1)
  1. ERELZI [Suspect]
     Active Substance: ETANERCEPT-SZZS
     Indication: Rheumatoid arthritis
     Dosage: 50 MG, QW
     Route: 058
     Dates: start: 20220720

REACTIONS (5)
  - Rheumatoid arthritis [Unknown]
  - Road traffic accident [Unknown]
  - Open reduction of fracture [Unknown]
  - Arthrodesis [Unknown]
  - General physical health deterioration [Unknown]
